FAERS Safety Report 6389451-6 (Version None)
Quarter: 2009Q4

REPORT INFORMATION
  Report Type: 
  Country: None (occurrence: None)
  Receive Date: 20091006
  Receipt Date: 20090925
  Transmission Date: 20100525
  Serious: Yes (Other)
  Sender: FDA-Public Use
  Company Number: US-ASTRAZENECA-2009SE15794

PATIENT
  Sex: Male

DRUGS (1)
  1. SEROQUEL [Suspect]
     Dosage: FOUR 10 OR 20 MG PILLS AT A TIME
     Route: 048
     Dates: start: 19980801

REACTIONS (2)
  - DIABETES MELLITUS [None]
  - HEPATITIS C [None]
